FAERS Safety Report 7069475-6 (Version None)
Quarter: 2010Q4

REPORT INFORMATION
  Report Type: 
  Country: None (occurrence: None)
  Receive Date: 20101028
  Receipt Date: 20100125
  Transmission Date: 20110411
  Serious: No
  Sender: FDA-Public Use
  Company Number: US-WYE-H13160910

PATIENT
  Age: 59 Year
  Sex: Female
  Weight: 102.15 kg

DRUGS (1)
  1. ADVIL COLD AND SINUS [Suspect]
     Indication: NASAL CONGESTION
     Dosage: 1 CAPSULE X 1
     Route: 048
     Dates: start: 20100123, end: 20100123

REACTIONS (1)
  - HEADACHE [None]
